FAERS Safety Report 6871288-2 (Version None)
Quarter: 2010Q3

REPORT INFORMATION
  Report Type: 
  Country: None (occurrence: None)
  Receive Date: 20100723
  Receipt Date: 20100715
  Transmission Date: 20110219
  Serious: Yes (Death)
  Sender: FDA-Public Use
  Company Number: US-ROCHE-716701

PATIENT
  Sex: Male

DRUGS (3)
  1. AVASTIN [Suspect]
     Indication: COLORECTAL CANCER
     Route: 042
  2. XELODA [Suspect]
     Indication: COLORECTAL CANCER
     Route: 065
  3. 5 FU/CISPLATIN [Suspect]
     Indication: COLORECTAL CANCER
     Route: 048

REACTIONS (1)
  - DISEASE PROGRESSION [None]
